FAERS Safety Report 7912114-X (Version None)
Quarter: 2011Q4

REPORT INFORMATION
  Report Type: 
  Country: None (occurrence: None)
  Receive Date: 20111114
  Receipt Date: 20111104
  Transmission Date: 20120403
  Serious: Yes (Hospitalization, Other)
  Sender: FDA-Public Use
  Company Number: US-NAPPMUNDI-USA-2011-0074667

PATIENT
  Sex: Female

DRUGS (3)
  1. SUBUTEX [Suspect]
     Indication: PAIN
     Dosage: UNK UNK, SEE TEXT
     Dates: start: 20040101
  2. BUTRANS [Suspect]
     Indication: BACK PAIN
     Dosage: 20 MCG/HR, DAILY
     Route: 062
     Dates: start: 20110801, end: 20110914
  3. BUTRANS [Suspect]
     Indication: PAIN

REACTIONS (10)
  - APPLICATION SITE RASH [None]
  - SPINAL FUSION SURGERY [None]
  - DRUG INEFFECTIVE [None]
  - INTERNAL FIXATION OF SPINE [None]
  - SENSORY LOSS [None]
  - APPLICATION SITE ERYTHEMA [None]
  - PAIN [None]
  - APPLICATION SITE BURN [None]
  - SURGERY [None]
  - BREAKTHROUGH PAIN [None]
